FAERS Safety Report 4960352-0 (Version None)
Quarter: 2006Q2

REPORT INFORMATION
  Report Type: 
  Country: None (occurrence: None)
  Receive Date: 20060403
  Receipt Date: 20060324
  Transmission Date: 20061013
  Serious: Yes (Other)
  Sender: FDA-Public Use
  Company Number: PHBS2006US04544

PATIENT
  Age: 37 Year
  Sex: Female

DRUGS (1)
  1. RITALIN [Suspect]
     Route: 042

REACTIONS (4)
  - DRUG ABUSER [None]
  - LIVER DISORDER [None]
  - RETINOPATHY [None]
  - VISION BLURRED [None]
